FAERS Safety Report 9098202 (Version 5)
Quarter: 2013Q4

REPORT INFORMATION
  Report Type: Report from Study
  Country: DE (occurrence: DE)
  Receive Date: 20130213
  Receipt Date: 20131118
  Transmission Date: 20140711
  Serious: Yes (Hospitalization)
  Sender: FDA-Public Use
  Company Number: DE-PFIZER INC-2013012903

PATIENT
  Age: 66 Year
  Sex: Female
  Weight: 57.7 kg

DRUGS (6)
  1. AROMASIN [Suspect]
     Indication: BREAST CANCER
     Dosage: 25 MG, 1X/DAY
     Route: 048
     Dates: start: 20101029, end: 20130227
  2. JODTHYROX [Concomitant]
     Dosage: 100 UG, 1X/DAY
  3. BUDENOFALK [Concomitant]
     Dosage: 3 MG, 1X/DAY
  4. WET-COMOD [Concomitant]
     Dosage: UNK
  5. VOLTAREN [Concomitant]
     Dosage: 75 MG, AS NEEDED
  6. PANTOZOL [Concomitant]
     Dosage: 20 MG, AS NEEDED

REACTIONS (1)
  - Arthritis [Recovered/Resolved]
